FAERS Safety Report 25818918 (Version 1)
Quarter: 2025Q3

REPORT INFORMATION
  Report Type: Spontaneous
  Country: US (occurrence: None)
  Receive Date: 20250918
  Receipt Date: 20250918
  Transmission Date: 20251021
  Serious: No
  Sender: FDA-CTU
  Company Number: None

PATIENT
  Sex: Male

DRUGS (17)
  1. VIGABATRIN [Suspect]
     Active Substance: VIGABATRIN
     Indication: Epilepsy
  2. LACOSAMIDE [Concomitant]
     Active Substance: LACOSAMIDE
  3. FAMOTIDINE [Concomitant]
     Active Substance: FAMOTIDINE
  4. LEVETIRACETAM [Concomitant]
     Active Substance: LEVETIRACETAM
  5. SIMETHICONE (DIMETHICONE) [Concomitant]
     Active Substance: DIMETHICONE
  6. POLYVITES/FLUORIDE [Concomitant]
  7. NYSTATIN [Concomitant]
     Active Substance: NYSTATIN
  8. CHILDRENS TYLENOL [Concomitant]
     Active Substance: ACETAMINOPHEN
  9. DIGOXIN [Concomitant]
     Active Substance: DIGOXIN
  10. FUROSEMIDE [Concomitant]
     Active Substance: FUROSEMIDE
  11. LEVOCARNITINE [Concomitant]
     Active Substance: LEVOCARNITINE
  12. MUPIROCIN [Concomitant]
     Active Substance: MUPIROCIN
  13. SODIUM CHLORIDE [Concomitant]
     Active Substance: SODIUM CHLORIDE
  14. TRIAMCINOLONE ACETONIDE [Concomitant]
     Active Substance: TRIAMCINOLONE ACETONIDE
  15. CLOBAZAM [Concomitant]
     Active Substance: CLOBAZAM
  16. CAPTOPRIL [Concomitant]
     Active Substance: CAPTOPRIL
  17. GOODSENSE ASPIRIN [Concomitant]

REACTIONS (2)
  - Drug ineffective [None]
  - Therapy change [None]
